FAERS Safety Report 4697757-1 (Version None)
Quarter: 2005Q2

REPORT INFORMATION
  Report Type: 
  Country: None (occurrence: None)
  Receive Date: 20050623
  Receipt Date: 20050614
  Transmission Date: 20051028
  Serious: Yes (Hospitalization)
  Sender: FDA-Public Use
  Company Number: US-JNJFOC-20050604485

PATIENT
  Age: 52 Year
  Sex: Female

DRUGS (2)
  1. RISPERDAL [Suspect]
     Indication: SCHIZOAFFECTIVE DISORDER
     Route: 049
  2. LITHIUM [Concomitant]

REACTIONS (1)
  - PLATELET COUNT DECREASED [None]
